FAERS Safety Report 9153754 (Version 1)
Quarter: 2013Q1

REPORT INFORMATION
  Report Type: Spontaneous
  Country: US (occurrence: None)
  Receive Date: 20130308
  Receipt Date: 20130308
  Transmission Date: 20140127
  Serious: Yes (Hospitalization, Disabling)
  Sender: FDA-Public Use
  Company Number: None

PATIENT
  Age: 55 Year
  Sex: Male
  Weight: 102.3 kg

DRUGS (7)
  1. CIPROFLOXACIN [Suspect]
     Indication: INFECTION
     Dosage: 500MG DAILY 3/15/10 - 3/25/10 FOR INFECTION - NDC #55111-0127-01
     Dates: start: 20100315, end: 20100325
  2. NABUMETONE 500MG 2 TABS DAILY - FIBROMYALGIA - NDC #68462-0358-01 [Concomitant]
     Indication: FIBROMYALGIA
     Dosage: 500MG 2 TABS DAILY - FIBROMYALGIA - NDC #68462-0358-01
  3. CYCLOBENZAPRINE [Suspect]
     Indication: FIBROMYALGIA
  4. DIOVAN HCT [Suspect]
     Indication: HYPERTENSION
  5. METOPROLOL [Suspect]
     Indication: TACHYCARDIA
  6. LIPITOR [Suspect]
     Indication: HYPERLIPIDAEMIA
  7. ASPIRIN [Suspect]
     Indication: PROPHYLAXIS

REACTIONS (1)
  - Colitis ischaemic [None]
